FAERS Safety Report 9557427 (Version 1)
Quarter: 2013Q3

REPORT INFORMATION
  Report Type: Spontaneous
  Country: US (occurrence: US)
  Receive Date: 20130926
  Receipt Date: 20130926
  Transmission Date: 20140515
  Serious: No
  Sender: FDA-Public Use
  Company Number: US-009507513-1309USA012629

PATIENT
  Sex: Female

DRUGS (1)
  1. MIRALAX [Suspect]
     Indication: CONSTIPATION
     Dosage: UNK, QD
     Route: 048
     Dates: start: 2012

REACTIONS (5)
  - Skin irritation [Unknown]
  - Haemorrhoids [Unknown]
  - Rash papular [Unknown]
  - Incorrect drug administration duration [Unknown]
  - Underdose [Unknown]
